FAERS Safety Report 18663199 (Version 5)
Quarter: 2023Q2

REPORT INFORMATION
  Report Type: Report from Study
  Country: CA (occurrence: CA)
  Receive Date: 20201224
  Receipt Date: 20230531
  Transmission Date: 20230722
  Serious: Yes (Other)
  Sender: FDA-Public Use
  Company Number: NVSC2020CA171296

PATIENT
  Age: 52 Year
  Sex: Male

DRUGS (3)
  1. COSENTYX [Suspect]
     Active Substance: SECUKINUMAB
     Indication: Psoriasis
     Dosage: 300 MG
     Route: 058
     Dates: start: 20200312, end: 20200416
  2. COSENTYX [Suspect]
     Active Substance: SECUKINUMAB
     Dosage: 300 MG
     Route: 058
     Dates: start: 20200416
  3. ENSTILAR [Concomitant]
     Active Substance: BETAMETHASONE DIPROPIONATE\CALCIPOTRIENE HYDRATE
     Indication: Product used for unknown indication
     Dosage: UNK (ENSTILLAR FOAM)
     Route: 065
     Dates: start: 20200903

REACTIONS (7)
  - Cellulitis [Recovered/Resolved]
  - Cellulitis [Recovered/Resolved]
  - Rhinitis [Recovering/Resolving]
  - Headache [Recovered/Resolved]
  - Peripheral swelling [Recovering/Resolving]
  - Blood pressure increased [Not Recovered/Not Resolved]
  - Pain in extremity [Recovering/Resolving]

NARRATIVE: CASE EVENT DATE: 20200319
